FAERS Safety Report 13456364 (Version 2)
Quarter: 2017Q2

REPORT INFORMATION
  Report Type: Report from Study
  Country: JP (occurrence: JP)
  Receive Date: 20170418
  Receipt Date: 20170428
  Transmission Date: 20170830
  Serious: Yes (Hospitalization)
  Sender: FDA-Public Use
  Company Number: JP-PFIZER INC-2017161448

PATIENT
  Age: 55 Year
  Sex: Male
  Weight: 88 kg

DRUGS (9)
  1. INSULIN DEGLUDEC [Concomitant]
     Active Substance: INSULIN DEGLUDEC
     Dosage: UNK
     Dates: start: 20130306, end: 20161129
  2. MITIGLINIDE [Concomitant]
     Active Substance: MITIGLINIDE
  3. HALCION [Suspect]
     Active Substance: TRIAZOLAM
     Indication: INSOMNIA
     Dosage: UNK
     Dates: start: 20120914
  4. BLINDED_NN9068 [Suspect]
     Active Substance: INSULIN DEGLUDEC\LIRAGLUTIDE
     Indication: TYPE 2 DIABETES MELLITUS
     Dosage: UNK
     Dates: start: 20161201
  5. TRIAZOLAM. [Concomitant]
     Active Substance: TRIAZOLAM
     Dosage: UNK
     Dates: start: 20120914
  6. VOGLIBOSE [Concomitant]
     Active Substance: VOGLIBOSE
  7. BLINDED_NN9068 [Suspect]
     Active Substance: INSULIN DEGLUDEC\LIRAGLUTIDE
     Dosage: UNK
     Dates: start: 20170409
  8. REPAGLINIDE. [Concomitant]
     Active Substance: REPAGLINIDE
     Dosage: UNK
     Dates: start: 20160810, end: 20161129
  9. METFORMIN HYDROCHLORIDE. [Concomitant]
     Active Substance: METFORMIN HYDROCHLORIDE
     Dosage: UNK
     Dates: start: 20140717

REACTIONS (3)
  - Road traffic accident [Recovering/Resolving]
  - Hip fracture [Recovering/Resolving]
  - Irritability [None]

NARRATIVE: CASE EVENT DATE: 20170326
